FAERS Safety Report 11324723 (Version 4)
Quarter: 2015Q4

REPORT INFORMATION
  Report Type: Spontaneous
  Country: JP (occurrence: JP)
  Receive Date: 20150730
  Receipt Date: 20151001
  Transmission Date: 20160304
  Serious: Yes (Other)
  Sender: FDA-Public Use
  Company Number: JP-MALLINCKRODT-T201503606

PATIENT
  Age: 40 Year
  Sex: Male
  Weight: 121 kg

DRUGS (49)
  1. METHADONE [Suspect]
     Active Substance: METHADONE HYDROCHLORIDE
     Dosage: 30 MG, (90 MG DAILY DOSE)
     Route: 048
     Dates: start: 20150120, end: 20150306
  2. METHADONE [Suspect]
     Active Substance: METHADONE HYDROCHLORIDE
     Dosage: 10 MG, (30 MG DAILY DOSE)
     Route: 048
     Dates: start: 20150319, end: 20150322
  3. LANSOPRAZOLE. [Concomitant]
     Active Substance: LANSOPRAZOLE
     Indication: PRODUCT USED FOR UNKNOWN INDICATION
     Dosage: 30 MG
     Route: 048
     Dates: end: 20150112
  4. SODIUM PICOSULFATE [Concomitant]
     Active Substance: SODIUM PICOSULFATE
     Indication: PRODUCT USED FOR UNKNOWN INDICATION
     Dosage: 7.5 MG
     Route: 048
     Dates: start: 20150107, end: 20150113
  5. METHADONE [Suspect]
     Active Substance: METHADONE HYDROCHLORIDE
     Dosage: 10 MG, (20 MG DAILY DOSE)
     Route: 048
     Dates: start: 20141210, end: 20141216
  6. METHADONE [Suspect]
     Active Substance: METHADONE HYDROCHLORIDE
     Dosage: 15 MG, (30 MG DAILY DOSE)
     Route: 048
     Dates: start: 20141217, end: 20141223
  7. METHADONE [Suspect]
     Active Substance: METHADONE HYDROCHLORIDE
     Dosage: 20 MG, (60 MG DAILY DOSE)
     Route: 048
     Dates: start: 20150307, end: 20150318
  8. ZYPREXA [Concomitant]
     Active Substance: OLANZAPINE
     Indication: PRODUCT USED FOR UNKNOWN INDICATION
     Dosage: 2.5 MG
     Route: 048
     Dates: start: 20150115, end: 20150203
  9. SILECE [Concomitant]
     Active Substance: FLUNITRAZEPAM
     Indication: PRODUCT USED FOR UNKNOWN INDICATION
     Dosage: 1 MG
     Route: 048
     Dates: start: 20150204, end: 20150222
  10. SILECE [Concomitant]
     Active Substance: FLUNITRAZEPAM
     Dosage: 2 MG
     Route: 048
     Dates: start: 20150223, end: 20150312
  11. CRAVIT [Concomitant]
     Active Substance: LEVOFLOXACIN
     Indication: PRODUCT USED FOR UNKNOWN INDICATION
     Dosage: 500 MG
     Route: 051
     Dates: start: 20150306, end: 20150310
  12. MORPHINE HCL [Concomitant]
     Active Substance: MORPHINE HYDROCHLORIDE
     Dosage: 120 MG
     Route: 051
     Dates: start: 20150326, end: 20150326
  13. OXYCONTIN [Concomitant]
     Active Substance: OXYCODONE HYDROCHLORIDE
     Indication: PRODUCT USED FOR UNKNOWN INDICATION
     Dosage: 200 MG
     Route: 048
     Dates: start: 20150204, end: 20150307
  14. BETANAMIN [Concomitant]
     Indication: PRODUCT USED FOR UNKNOWN INDICATION
     Dosage: 25 MG
     Route: 048
     Dates: start: 20150303, end: 20150305
  15. ROPION [Concomitant]
     Active Substance: FLURBIPROFEN AXETIL
     Dosage: 150 MG
     Route: 051
     Dates: start: 20150306, end: 20150316
  16. MORPHINE HCL [Concomitant]
     Active Substance: MORPHINE HYDROCHLORIDE
     Dosage: 134.4 MG
     Route: 051
     Dates: start: 20150327, end: 20150401
  17. P GUARD [Concomitant]
     Active Substance: MORPHINE SULFATE
     Dosage: 480 MG
     Route: 048
     Dates: start: 20141224, end: 20150105
  18. P GUARD [Concomitant]
     Active Substance: MORPHINE SULFATE
     Dosage: 240 MG
     Route: 048
     Dates: start: 20150106, end: 20150113
  19. AMITIZA [Concomitant]
     Active Substance: LUBIPROSTONE
     Indication: PRODUCT USED FOR UNKNOWN INDICATION
     Dosage: 48 UG
     Route: 048
     Dates: end: 20150322
  20. AVASTIN [Concomitant]
     Active Substance: BEVACIZUMAB
     Indication: PRODUCT USED FOR UNKNOWN INDICATION
     Dosage: 625 MG
     Route: 042
     Dates: end: 20141203
  21. ZOMETA [Concomitant]
     Active Substance: ZOLEDRONIC ACID
     Indication: PRODUCT USED FOR UNKNOWN INDICATION
     Dosage: 4 MG
     Route: 042
     Dates: end: 20141203
  22. TEGRETOL [Concomitant]
     Active Substance: CARBAMAZEPINE
     Indication: PRODUCT USED FOR UNKNOWN INDICATION
     Dosage: 400 MG
     Route: 048
     Dates: start: 20150128, end: 20150205
  23. BETANAMIN [Concomitant]
     Dosage: 50 MG
     Route: 048
     Dates: start: 20150306, end: 20150322
  24. PRIMPERAN [Concomitant]
     Active Substance: METOCLOPRAMIDE HYDROCHLORIDE
     Indication: PRODUCT USED FOR UNKNOWN INDICATION
     Dosage: 10 MG
     Route: 051
     Dates: start: 20141222, end: 20150121
  25. CONTOMIN [Concomitant]
     Active Substance: CHLORPROMAZINE
     Indication: PRODUCT USED FOR UNKNOWN INDICATION
     Dosage: 5 MG
     Route: 051
     Dates: start: 20150121, end: 20150203
  26. MORPHINE HCL [Concomitant]
     Active Substance: MORPHINE HYDROCHLORIDE
     Dosage: 72 MG
     Route: 051
     Dates: start: 20150307, end: 20150308
  27. MORPHINE HCL [Concomitant]
     Active Substance: MORPHINE HYDROCHLORIDE
     Dosage: 96 MG
     Route: 051
     Dates: start: 20150309, end: 20150318
  28. P GUARD [Concomitant]
     Active Substance: MORPHINE SULFATE
     Dosage: 720 MG
     Route: 048
     Dates: start: 20141217, end: 20141223
  29. LYRICA [Concomitant]
     Active Substance: PREGABALIN
     Indication: PRODUCT USED FOR UNKNOWN INDICATION
     Dosage: 75 MG
     Route: 048
     Dates: end: 20150129
  30. DEPAKENE [Concomitant]
     Active Substance: VALPROIC ACID
     Indication: PRODUCT USED FOR UNKNOWN INDICATION
     Dosage: 20 MG
     Route: 048
     Dates: start: 20150203, end: 20150312
  31. METHADONE [Suspect]
     Active Substance: METHADONE HYDROCHLORIDE
     Dosage: 20 MG, (40 MG DAILY DOSE)
     Route: 048
     Dates: start: 20141224, end: 20150105
  32. MORPHINE HCL [Concomitant]
     Active Substance: MORPHINE HYDROCHLORIDE
     Indication: PRODUCT USED FOR UNKNOWN INDICATION
     Dosage: 100 MG
     Route: 048
     Dates: start: 20141202
  33. LYRICA [Concomitant]
     Active Substance: PREGABALIN
     Dosage: 150 MG
     Route: 048
     Dates: start: 20150202, end: 20150322
  34. MAGLAX [Concomitant]
     Active Substance: MAGNESIUM OXIDE
     Indication: PRODUCT USED FOR UNKNOWN INDICATION
     Dosage: 1500 MG
     Route: 048
     Dates: end: 20150322
  35. OMEPRAL [Concomitant]
     Active Substance: OMEPRAZOLE
     Indication: PRODUCT USED FOR UNKNOWN INDICATION
     Dosage: 20 MG
     Route: 048
     Dates: start: 20150131, end: 20150206
  36. OMEPRAZOLE. [Concomitant]
     Active Substance: OMEPRAZOLE
     Indication: PRODUCT USED FOR UNKNOWN INDICATION
     Dosage: 20 MG
     Route: 051
     Dates: start: 20150125, end: 20150224
  37. ROPION [Concomitant]
     Active Substance: FLURBIPROFEN AXETIL
     Indication: PRODUCT USED FOR UNKNOWN INDICATION
     Dosage: 150 MG
     Route: 051
     Dates: start: 20150220, end: 20150227
  38. METHADONE [Suspect]
     Active Substance: METHADONE HYDROCHLORIDE
     Indication: CANCER PAIN
     Dosage: 5 MG, (15 MG DAILY DOSE)
     Route: 048
     Dates: start: 20141203, end: 20141209
  39. METHADONE [Suspect]
     Active Substance: METHADONE HYDROCHLORIDE
     Dosage: 20 MG, (60 MG DAILY DOSE)
     Route: 048
     Dates: start: 20150106, end: 20150112
  40. METHADONE [Suspect]
     Active Substance: METHADONE HYDROCHLORIDE
     Dosage: 25 MG, (75 MG DAILY DOSE)
     Route: 048
     Dates: start: 20150113, end: 20150119
  41. MORPHINE HCL [Concomitant]
     Active Substance: MORPHINE HYDROCHLORIDE
     Dosage: 72 MG
     Route: 051
     Dates: start: 20150319, end: 20150322
  42. MORPHINE HCL [Concomitant]
     Active Substance: MORPHINE HYDROCHLORIDE
     Dosage: 144 MG
     Route: 051
     Dates: start: 20150323, end: 20150325
  43. P GUARD [Concomitant]
     Active Substance: MORPHINE SULFATE
     Indication: PRODUCT USED FOR UNKNOWN INDICATION
     Dosage: 1200 MG
     Route: 048
     Dates: end: 20141209
  44. P GUARD [Concomitant]
     Active Substance: MORPHINE SULFATE
     Dosage: 960 MG
     Route: 048
     Dates: start: 20141210, end: 20141216
  45. NAIXAN [Concomitant]
     Active Substance: NAPROXEN SODIUM
     Indication: PRODUCT USED FOR UNKNOWN INDICATION
     Dosage: 600 MG
     Route: 048
     Dates: end: 20150226
  46. TEGRETOL [Concomitant]
     Active Substance: CARBAMAZEPINE
     Dosage: 600 MG
     Route: 048
     Dates: start: 20150206, end: 20150312
  47. GRANISETRON [Concomitant]
     Active Substance: GRANISETRON
     Indication: PRODUCT USED FOR UNKNOWN INDICATION
     Dosage: 3 MG
     Route: 051
     Dates: start: 20150203, end: 20150210
  48. ROPION [Concomitant]
     Active Substance: FLURBIPROFEN AXETIL
     Dosage: 50 MG
     Route: 051
     Dates: start: 20150302, end: 20150304
  49. RINDERON V [Concomitant]
     Active Substance: BETAMETHASONE VALERATE
     Indication: PRODUCT USED FOR UNKNOWN INDICATION
     Dosage: 2 MG
     Route: 051
     Dates: start: 20150317, end: 20150401

REACTIONS (7)
  - Hallucination [Recovered/Resolved]
  - Pneumonia [Recovered/Resolved]
  - VIth nerve paralysis [Not Recovered/Not Resolved]
  - Pyrexia [Recovered/Resolved]
  - Otitis media [Not Recovered/Not Resolved]
  - Nausea [Recovered/Resolved]
  - Oral candidiasis [Recovered/Resolved]

NARRATIVE: CASE EVENT DATE: 20141221
